FAERS Safety Report 25685543 (Version 2)
Quarter: 2025Q4

REPORT INFORMATION
  Report Type: Spontaneous
  Country: CA (occurrence: CA)
  Receive Date: 20250815
  Receipt Date: 20251013
  Transmission Date: 20260117
  Serious: Yes (Hospitalization, Other)
  Sender: PFIZER
  Company Number: CA-PFIZER INC-202500163064

PATIENT
  Age: 77 Year
  Sex: Female

DRUGS (4)
  1. ABRILADA [Suspect]
     Active Substance: ADALIMUMAB-AFZB
     Indication: Crohn^s disease
     Dosage: 1 DF, WK0: 160MG, WEEK 2: 80MG, 40 MG EVERY 2 WEEKS
     Route: 058
     Dates: start: 20230816
  2. MESALAMINE [Concomitant]
     Active Substance: MESALAMINE
     Dosage: UNK
  3. SULFASALAZINE [Concomitant]
     Active Substance: SULFASALAZINE
     Indication: Crohn^s disease
     Dosage: 1500 MG, 2X/DAY
     Route: 048
  4. METHOTREXATE [Concomitant]
     Active Substance: METHOTREXATE
     Indication: Crohn^s disease
     Dosage: 15 MG, WEEKLY
     Route: 058

REACTIONS (5)
  - Myocardial infarction [Unknown]
  - Condition aggravated [Unknown]
  - Infection [Unknown]
  - Asthenia [Unknown]
  - Hypotension [Unknown]

NARRATIVE: CASE EVENT DATE: 20250508
